FAERS Safety Report 9021854 (Version 1)
Quarter: 2013Q1

REPORT INFORMATION
  Report Type: Spontaneous
  Country: FR (occurrence: FR)
  Receive Date: 20130118
  Receipt Date: 20130118
  Transmission Date: 20140127
  Serious: Yes (Hospitalization)
  Sender: FDA-Public Use
  Company Number: FR-GE HEALTHCARE MEDICAL DIAGNOSTICS-VISP-NO-1003S-0120

PATIENT
  Age: 24 None
  Sex: Male

DRUGS (7)
  1. VISIPAQUE [Suspect]
     Indication: THERAPEUTIC EMBOLISATION
     Dosage: DOSE NOT REPORTED
     Route: 013
     Dates: start: 20100205, end: 20100205
  2. VISIPAQUE [Suspect]
     Indication: DIAGNOSTIC PROCEDURE
  3. NIMOPIDINE [Suspect]
     Route: 048
     Dates: start: 20100208, end: 20100212
  4. IOMEPROL [Suspect]
     Route: 042
     Dates: start: 20100205, end: 20100205
  5. LEVETIRACETAM [Suspect]
     Route: 048
     Dates: start: 20100205, end: 20100206
  6. PARACETAMOL (PERFALGAN) [Concomitant]
  7. HEPARIN [Concomitant]

REACTIONS (2)
  - Acute generalised exanthematous pustulosis [Recovered/Resolved]
  - Rash erythematous [Recovered/Resolved]
